FAERS Safety Report 21351910 (Version 1)
Quarter: 2022Q3

REPORT INFORMATION
  Report Type: Spontaneous
  Country: US (occurrence: None)
  Receive Date: 20220917
  Receipt Date: 20220917
  Transmission Date: 20221027
  Serious: No
  Sender: FDA-Public Use
  Company Number: None

PATIENT
  Sex: Female

DRUGS (1)
  1. IDHIFA [Suspect]
     Active Substance: ENASIDENIB MESYLATE
     Dosage: 50MG DAILY ORAL
     Route: 048

REACTIONS (3)
  - Peripheral swelling [None]
  - Pain in extremity [None]
  - Inappropriate schedule of product administration [None]
